FAERS Safety Report 21510282 (Version 3)
Quarter: 2024Q4

REPORT INFORMATION
  Report Type: Report from Study
  Country: US (occurrence: US)
  Receive Date: 20221026
  Receipt Date: 20241022
  Transmission Date: 20250115
  Serious: Yes (Other)
  Sender: JAZZ
  Company Number: US-JAZZ-2022-US-027240

PATIENT
  Sex: Male

DRUGS (53)
  1. XYWAV [Suspect]
     Active Substance: CALCIUM OXYBATE\MAGNESIUM OXYBATE\POTASSIUM OXYBATE\SODIUM OXYBATE
     Indication: Narcolepsy
     Dosage: 2.25 GRAM
     Route: 048
  2. BENZTROPINE MESYLATE [Concomitant]
     Active Substance: BENZTROPINE MESYLATE
     Indication: Product used for unknown indication
     Dosage: UNK
     Dates: start: 20151204
  3. BUPROPION HYDROCHLORIDE [Concomitant]
     Active Substance: BUPROPION HYDROCHLORIDE
     Indication: Product used for unknown indication
     Dosage: UNK
     Dates: start: 20151204
  4. CYMBALTA [Concomitant]
     Active Substance: DULOXETINE HYDROCHLORIDE
     Indication: Product used for unknown indication
     Dosage: UNK
     Dates: start: 20151204
  5. GABAPENTIN [Concomitant]
     Active Substance: GABAPENTIN
     Indication: Product used for unknown indication
     Dosage: UNK
     Dates: start: 20151204
  6. LAMOTRIGINE [Concomitant]
     Active Substance: LAMOTRIGINE
     Indication: Product used for unknown indication
     Dosage: UNK
     Dates: start: 20151204
  7. VITAMINS [Concomitant]
     Active Substance: VITAMINS
     Indication: Product used for unknown indication
     Dosage: UNK
     Dates: start: 20151204
  8. PRAVASTATIN [Concomitant]
     Active Substance: PRAVASTATIN
     Indication: Product used for unknown indication
     Dosage: UNK
     Dates: start: 20151204
  9. RANITIDINE [Concomitant]
     Active Substance: RANITIDINE
     Indication: Product used for unknown indication
     Dosage: UNK
     Dates: start: 20151204
  10. MODAFINIL [Concomitant]
     Active Substance: MODAFINIL
     Indication: Product used for unknown indication
     Dosage: UNK
     Dates: start: 20151204
  11. LORAZEPAM [Concomitant]
     Active Substance: LORAZEPAM
     Indication: Product used for unknown indication
     Dosage: UNK
     Dates: start: 20211031
  12. ALBUTEROL [Concomitant]
     Active Substance: ALBUTEROL
     Indication: Dyspnoea
     Dosage: UNK, BID
  13. ALBUTEROL [Concomitant]
     Active Substance: ALBUTEROL
     Dosage: UNK, BID
  14. ALBUTEROL [Concomitant]
     Active Substance: ALBUTEROL
     Dosage: UNK, BID
  15. ALBUTEROL [Concomitant]
     Active Substance: ALBUTEROL
     Dosage: UNK, BID
  16. BENZTROPINE [Concomitant]
     Active Substance: BENZTROPINE
     Indication: Extrapyramidal disorder
     Dosage: UNK, BID
     Route: 048
  17. BENZTROPINE [Concomitant]
     Active Substance: BENZTROPINE
     Dosage: UNK, BID
     Route: 048
  18. BENZTROPINE [Concomitant]
     Active Substance: BENZTROPINE
     Dosage: UNK, BID
     Route: 048
  19. BENZTROPINE [Concomitant]
     Active Substance: BENZTROPINE
     Dosage: UNK, BID
     Route: 048
  20. DICLOFENAC [Concomitant]
     Active Substance: DICLOFENAC
     Indication: Pain in extremity
     Dosage: UNK, BID
  21. DICLOFENAC [Concomitant]
     Active Substance: DICLOFENAC
     Indication: Inflammation
     Dosage: UNK, BID
  22. DICLOFENAC [Concomitant]
     Active Substance: DICLOFENAC
     Dosage: UNK, BID
  23. DICLOFENAC [Concomitant]
     Active Substance: DICLOFENAC
     Dosage: UNK, BID
  24. GUAIFENESIN [Concomitant]
     Active Substance: GUAIFENESIN
     Indication: Cough
     Dosage: 10 MILLILITER, BID
     Route: 048
  25. GUAIFENESIN [Concomitant]
     Active Substance: GUAIFENESIN
     Dosage: 10 MILLILITER, BID
     Route: 048
  26. GUAIFENESIN [Concomitant]
     Active Substance: GUAIFENESIN
     Dosage: 10 MILLILITER, BID
     Route: 048
  27. GUAIFENESIN [Concomitant]
     Active Substance: GUAIFENESIN
     Dosage: 10 MILLILITER, BID
     Route: 048
  28. PANTOPRAZOLE [Concomitant]
     Active Substance: PANTOPRAZOLE
     Indication: Gastrooesophageal reflux disease
     Dosage: UNK, QD
     Route: 048
  29. PANTOPRAZOLE [Concomitant]
     Active Substance: PANTOPRAZOLE
     Dosage: UNK, QD
     Route: 048
  30. PANTOPRAZOLE [Concomitant]
     Active Substance: PANTOPRAZOLE
     Dosage: UNK, QD
     Route: 048
  31. PANTOPRAZOLE [Concomitant]
     Active Substance: PANTOPRAZOLE
     Dosage: UNK, QD
     Route: 048
  32. PRAZOSIN [Concomitant]
     Active Substance: PRAZOSIN\PRAZOSIN HYDROCHLORIDE
     Indication: Nightmare
     Dosage: FOUR CAPSULES BY MOUTH AT BEDTIME
     Route: 048
  33. PRAZOSIN [Concomitant]
     Active Substance: PRAZOSIN\PRAZOSIN HYDROCHLORIDE
     Dosage: FOUR CAPSULES BY MOUTH AT BEDTIME
     Route: 048
  34. PRAZOSIN [Concomitant]
     Active Substance: PRAZOSIN\PRAZOSIN HYDROCHLORIDE
     Dosage: FOUR CAPSULES BY MOUTH AT BEDTIME
     Route: 048
  35. PRAZOSIN [Concomitant]
     Active Substance: PRAZOSIN\PRAZOSIN HYDROCHLORIDE
     Dosage: FOUR CAPSULES BY MOUTH AT BEDTIME
     Route: 048
  36. RISPERIDONE [Concomitant]
     Active Substance: RISPERIDONE
     Dosage: ONE AND ONE-HALF TABLETS BY MOUTH EVERY MORNING AND TAKE ONE AND ONE-HALF TABLETS EVERY EVENING.
     Route: 048
  37. RISPERIDONE [Concomitant]
     Active Substance: RISPERIDONE
     Dosage: ONE AND ONE-HALF TABLETS BY MOUTH EVERY MORNING AND TAKE ONE AND ONE-HALF TABLETS EVERY EVENING.
     Route: 048
  38. RISPERIDONE [Concomitant]
     Active Substance: RISPERIDONE
     Dosage: ONE AND ONE-HALF TABLETS BY MOUTH EVERY MORNING AND TAKE ONE AND ONE-HALF TABLETS EVERY EVENING.
     Route: 048
  39. RISPERIDONE [Concomitant]
     Active Substance: RISPERIDONE
     Dosage: ONE AND ONE-HALF TABLETS BY MOUTH EVERY MORNING AND TAKE ONE AND ONE-HALF TABLETS EVERY EVENING.
     Route: 048
  40. ALPRAZOLAM [Concomitant]
     Active Substance: ALPRAZOLAM
     Dosage: UNK
     Route: 048
  41. ALPRAZOLAM [Concomitant]
     Active Substance: ALPRAZOLAM
     Dosage: UNK
     Route: 048
  42. ALPRAZOLAM [Concomitant]
     Active Substance: ALPRAZOLAM
     Dosage: UNK
     Route: 048
  43. ALPRAZOLAM [Concomitant]
     Active Substance: ALPRAZOLAM
     Dosage: UNK
     Route: 048
  44. AMPHETAMINE [Concomitant]
     Active Substance: AMPHETAMINE
     Indication: Product used for unknown indication
     Dosage: UNK, TID
  45. AMPHETAMINE [Concomitant]
     Active Substance: AMPHETAMINE
     Dosage: UNK, TID
  46. AMPHETAMINE [Concomitant]
     Active Substance: AMPHETAMINE
     Dosage: UNK, TID
  47. AMPHETAMINE [Concomitant]
     Active Substance: AMPHETAMINE
     Dosage: UNK, TID
  48. ATOMOXETINE HYDROCHLORIDE [Concomitant]
     Active Substance: ATOMOXETINE HYDROCHLORIDE
     Indication: Product used for unknown indication
     Dosage: UNK
     Dates: start: 20230713
  49. DICLOFENAC SODIUM [Concomitant]
     Active Substance: DICLOFENAC SODIUM
     Indication: Product used for unknown indication
     Dosage: UNK
     Dates: start: 20231102
  50. IBUPROFEN [Concomitant]
     Active Substance: IBUPROFEN
     Indication: Product used for unknown indication
     Dosage: UNK
     Dates: start: 20231102
  51. ADDERALL [Concomitant]
     Active Substance: AMPHETAMINE ASPARTATE\AMPHETAMINE SULFATE\DEXTROAMPHETAMINE SACCHARATE\DEXTROAMPHETAMINE SULFATE
     Indication: Product used for unknown indication
     Dosage: UNK
     Dates: start: 20230906
  52. TOPAMAX [Concomitant]
     Active Substance: TOPIRAMATE
     Indication: Product used for unknown indication
     Dosage: UNK
     Dates: start: 20230806
  53. DULOXETINE HYDROCHLORIDE [Concomitant]
     Active Substance: DULOXETINE HYDROCHLORIDE
     Indication: Product used for unknown indication
     Dosage: 60 MILLIGRAM, BID
     Route: 048

REACTIONS (3)
  - Hernia [Unknown]
  - COVID-19 [Unknown]
  - Panic attack [Unknown]
